FAERS Safety Report 8642113 (Version 2)
Quarter: 2012Q4

REPORT INFORMATION
  Report Type: Spontaneous
  Country: DK (occurrence: None)
  Receive Date: 20120618
  Receipt Date: 20121002
  Transmission Date: 20130627
  Serious: Yes (Hospitalization)
  Sender: FDA-Public Use
  Company Number: 2012MA007329

PATIENT
  Age: 76 Year
  Sex: Male

DRUGS (5)
  1. DICLOFENAC SODIUM [Suspect]
     Indication: OSTEOARTHRITIS
     Route: 048
  2. SIMVASTATIN [Suspect]
     Indication: HYPERCHOLESTEROLAEMIA
     Route: 048
  3. CINNARIZINE [Concomitant]
  4. SILDENAFIL [Concomitant]
  5. GLUCOSAMINE [Concomitant]

REACTIONS (2)
  - RENAL INJURY [None]
  - MYOPATHY [None]
